FAERS Safety Report 8229320-X (Version None)
Quarter: 2012Q1

REPORT INFORMATION
  Report Type: 
  Country: None (occurrence: None)
  Receive Date: 20120322
  Receipt Date: 20120319
  Transmission Date: 20120608
  Serious: Yes (Hospitalization, Other)
  Sender: FDA-Public Use
  Company Number: US-TEVA-329045USA

PATIENT
  Age: 14 Month
  Sex: Female

DRUGS (1)
  1. QUINIDINE HCL [Suspect]
     Route: 065

REACTIONS (1)
  - ELECTROCARDIOGRAM QRS COMPLEX PROLONGED [None]
